FAERS Safety Report 5819707-4 (Version None)
Quarter: 2008Q3

REPORT INFORMATION
  Report Type: 
  Country: None (occurrence: None)
  Receive Date: 20080723
  Receipt Date: 20080710
  Transmission Date: 20090109
  Serious: Yes (Hospitalization, Other)
  Sender: FDA-Public Use
  Company Number: US-ELI_LILLY_AND_COMPANY-US200805004857

PATIENT
  Sex: Male

DRUGS (2)
  1. FORTEO [Suspect]
     Indication: OSTEOPOROSIS
     Dates: start: 20070101
  2. FORTEO [Suspect]
     Dosage: UNK, UNK
     Dates: start: 20070101

REACTIONS (12)
  - CHILLS [None]
  - CONVULSION [None]
  - DEVICE FAILURE [None]
  - DIARRHOEA [None]
  - ERYTHEMA [None]
  - MEDICAL DEVICE CHANGE [None]
  - PNEUMONIA [None]
  - PYREXIA [None]
  - RALES [None]
  - RASH [None]
  - TREMOR [None]
  - URINARY TRACT INFECTION [None]
